FAERS Safety Report 17982463 (Version 1)
Quarter: 2020Q3

REPORT INFORMATION
  Report Type: Spontaneous
  Country: US (occurrence: US)
  Receive Date: 20200706
  Receipt Date: 20200706
  Transmission Date: 20201103
  Serious: Yes (Hospitalization, Other)
  Sender: FDA-Public Use
  Company Number: US-ADVANZ PHARMA-202006006370

PATIENT

DRUGS (1)
  1. CLONIDINE. [Suspect]
     Active Substance: CLONIDINE
     Indication: ATTENTION DEFICIT HYPERACTIVITY DISORDER
     Dosage: 50 MG, SUSPENSION, (CLONIDINE HCL 9.78 MG/ML)

REACTIONS (4)
  - Toxicity to various agents [Unknown]
  - Hyperventilation [Recovering/Resolving]
  - Overdose [Unknown]
  - Product preparation error [Unknown]
